FAERS Safety Report 10183508 (Version 2)
Quarter: 2014Q2

REPORT INFORMATION
  Report Type: Spontaneous
  Country: HU (occurrence: HU)
  Receive Date: 20140520
  Receipt Date: 20140520
  Transmission Date: 20141212
  Serious: Yes (Other)
  Sender: FDA-Public Use
  Company Number: HU-BAYER-2014-008007

PATIENT
  Age: 57 Year
  Sex: Male

DRUGS (1)
  1. STIVARGA [Suspect]
     Indication: RECTAL NEOPLASM
     Dosage: 4 TABLETS (160 MG) IN THE MORNING
     Route: 048
     Dates: start: 20131223, end: 20140424

REACTIONS (2)
  - Hypertension [Recovered/Resolved]
  - Metastases to lung [None]
